FAERS Safety Report 7611230-X (Version None)
Quarter: 2011Q3

REPORT INFORMATION
  Report Type: 
  Country: None (occurrence: None)
  Receive Date: 20110707
  Receipt Date: 20110627
  Transmission Date: 20111222
  Serious: Yes (Hospitalization, Other)
  Sender: FDA-Public Use
  Company Number: DSU-2009-00926

PATIENT
  Sex: Female
  Weight: 52.6173 kg

DRUGS (8)
  1. CALCIUM (CALCIUM) (CALCIUM) [Concomitant]
  2. VERAPAMIL [Concomitant]
  3. AMLODIPINE [Concomitant]
  4. BIOTIN (BIOTIN) (BIOTIN) [Concomitant]
  5. BENICAR [Suspect]
     Indication: HYPERTENSION
     Dosage: 20 MG (20 MG, QD), PER ORAL, 5 MG (5 MG, QD), PER ORAL, 10 MG (10 MG, 2 TABS QD), PER ORAL
     Route: 048
     Dates: start: 20100222
  6. BENICAR [Suspect]
     Indication: HYPERTENSION
     Dosage: 20 MG (20 MG, QD), PER ORAL, 5 MG (5 MG, QD), PER ORAL, 10 MG (10 MG, 2 TABS QD), PER ORAL
     Route: 048
     Dates: start: 20090409, end: 20100221
  7. AMOXICILLIN [Concomitant]
  8. VITAMIN WITH MINERAL (VITAMINS WITH MINERALS) [Concomitant]

REACTIONS (15)
  - CHEST PAIN [None]
  - FALL [None]
  - CORNEAL TRANSPLANT [None]
  - HEART RATE IRREGULAR [None]
  - EXOSTOSIS [None]
  - NERVOUSNESS [None]
  - BLOOD CHOLESTEROL INCREASED [None]
  - BLOOD PRESSURE FLUCTUATION [None]
  - JOINT EFFUSION [None]
  - MUSCULOSKELETAL PAIN [None]
  - EYE SWELLING [None]
  - BODY HEIGHT DECREASED [None]
  - ROTATOR CUFF SYNDROME [None]
  - JOINT INJURY [None]
  - LUNG NEOPLASM [None]
